FAERS Safety Report 4839444-2 (Version None)
Quarter: 2005Q4

REPORT INFORMATION
  Report Type: 
  Country: None (occurrence: None)
  Receive Date: 20051129
  Receipt Date: 20051123
  Transmission Date: 20060501
  Serious: Yes (Disabling)
  Sender: FDA-Public Use
  Company Number: GB-MERCK-0511GBR00136

PATIENT
  Age: 79 Year
  Sex: Male

DRUGS (8)
  1. COZAAR [Suspect]
     Indication: HYPERTENSION
     Route: 048
     Dates: start: 20050704, end: 20051103
  2. COZAAR [Suspect]
     Route: 048
     Dates: start: 20051104
  3. COZAAR [Suspect]
     Indication: CEREBROVASCULAR ACCIDENT
     Route: 048
     Dates: start: 20050704, end: 20051103
  4. COZAAR [Suspect]
     Route: 048
     Dates: start: 20051104
  5. SIMVASTATIN [Concomitant]
     Indication: CEREBROVASCULAR ACCIDENT
     Route: 048
     Dates: start: 20041105
  6. RAMIPRIL [Concomitant]
     Indication: CEREBROVASCULAR ACCIDENT
     Route: 048
     Dates: start: 20051105
  7. ZOPICLONE [Concomitant]
     Indication: CEREBROVASCULAR ACCIDENT
     Route: 048
     Dates: start: 20041105
  8. ASPIRIN [Concomitant]
     Indication: CEREBROVASCULAR ACCIDENT
     Route: 048
     Dates: start: 20041105

REACTIONS (3)
  - FATIGUE [None]
  - LETHARGY [None]
  - MUSCLE SPASMS [None]
